FAERS Safety Report 13429773 (Version 2)
Quarter: 2017Q2

REPORT INFORMATION
  Report Type: Spontaneous
  Country: JP (occurrence: JP)
  Receive Date: 20170412
  Receipt Date: 20170426
  Transmission Date: 20170830
  Serious: Yes (Hospitalization, Other)
  Sender: FDA-Public Use
  Company Number: JP-TEVA-759677ACC

PATIENT
  Age: 84 Year
  Sex: Female

DRUGS (1)
  1. BENDAMUSTINE HYDROCHLORIDE. [Suspect]
     Active Substance: BENDAMUSTINE HYDROCHLORIDE
     Indication: B-CELL LYMPHOMA
     Dosage: 100 MG/BODY
     Route: 042

REACTIONS (5)
  - Sepsis [Unknown]
  - Platelet count decreased [Recovered/Resolved]
  - White blood cell count decreased [Recovered/Resolved]
  - Muscular weakness [Recovering/Resolving]
  - Disseminated intravascular coagulation [Unknown]

NARRATIVE: CASE EVENT DATE: 20170113
